FAERS Safety Report 7960541-7 (Version None)
Quarter: 2011Q4

REPORT INFORMATION
  Report Type: 
  Country: None (occurrence: None)
  Receive Date: 20111206
  Receipt Date: 20111128
  Transmission Date: 20120403
  Serious: Yes (Other)
  Sender: FDA-Public Use
  Company Number: PHHY2011AU105257

PATIENT
  Sex: Male

DRUGS (1)
  1. VOLTAREN [Suspect]
     Dosage: 50 MG, UNK
     Route: 048

REACTIONS (1)
  - ERECTILE DYSFUNCTION [None]
